FAERS Safety Report 6171099-X (Version None)
Quarter: 2009Q2

REPORT INFORMATION
  Report Type: 
  Country: None (occurrence: None)
  Receive Date: 20090429
  Receipt Date: 20090420
  Transmission Date: 20091009
  Serious: Yes (Other)
  Sender: FDA-Public Use
  Company Number: PHHY2009BE14955

PATIENT
  Age: 32 Year
  Sex: Female

DRUGS (3)
  1. CYCLOSPORINE [Suspect]
     Indication: RENAL TRANSPLANT
  2. TACALCITOL [Concomitant]
  3. CALCIUM [Concomitant]

REACTIONS (3)
  - GRAFT LOSS [None]
  - NEPHROANGIOSCLEROSIS [None]
  - NEPHROPATHY TOXIC [None]
